FAERS Safety Report 20209856 (Version 1)
Quarter: 2021Q4

REPORT INFORMATION
  Report Type: Report from Study
  Country: ES (occurrence: None)
  Receive Date: 20211221
  Receipt Date: 20211221
  Transmission Date: 20220303
  Serious: Yes (Other)
  Sender: FDA-Public Use
  Company Number: ES-ROCHE-2916409

PATIENT

DRUGS (8)
  1. TOCILIZUMAB [Suspect]
     Active Substance: TOCILIZUMAB
     Indication: COVID-19 pneumonia
     Dosage: 8 MG/KG IN PATIENTS WEIGHING  30 KG OR 12 MG/KG IN PATIENTS WEIGHING 30 KG AS A 60-MINUTE IV INFUSIO
     Route: 042
     Dates: start: 20200402
  2. METHYLPREDNISOLONE [Concomitant]
     Active Substance: METHYLPREDNISOLONE
     Indication: COVID-19
     Dates: start: 20200402, end: 20200405
  3. LOPINAVIR\RITONAVIR [Concomitant]
     Active Substance: LOPINAVIR\RITONAVIR
     Indication: COVID-19
     Dates: start: 20200402, end: 20200407
  4. HYDROXYCHLOROQUINE [Concomitant]
     Active Substance: HYDROXYCHLOROQUINE
     Indication: COVID-19
     Dates: start: 20200402, end: 20200409
  5. DELAPRIL [Concomitant]
     Active Substance: DELAPRIL
     Indication: Hypertension
     Dates: start: 20071121
  6. MANIDIPINE [Concomitant]
     Active Substance: MANIDIPINE
     Indication: Hypertension
     Dates: start: 20071121
  7. FENOFIBRATE;PRAVASTATIN [Concomitant]
     Indication: Hypercholesterolaemia
     Dates: start: 20081111
  8. ENOXAPARIN [Concomitant]
     Active Substance: ENOXAPARIN
     Indication: Thrombosis prophylaxis
     Dates: start: 20200402, end: 20200526

REACTIONS (1)
  - Respiratory failure [Recovered/Resolved]

NARRATIVE: CASE EVENT DATE: 20200415
